FAERS Safety Report 7875652-4 (Version None)
Quarter: 2011Q4

REPORT INFORMATION
  Report Type: 
  Country: None (occurrence: None)
  Receive Date: 20111031
  Receipt Date: 20111013
  Transmission Date: 20120403
  Serious: Yes (Hospitalization, Other)
  Sender: FDA-Public Use
  Company Number: PHHY2011FR91227

PATIENT
  Sex: Female

DRUGS (15)
  1. NEORAL [Suspect]
     Indication: STEM CELL TRANSPLANT
     Dosage: UNK UKN, UNK
     Dates: start: 20110906, end: 20110917
  2. CHLORPROMAZINE HCL [Concomitant]
     Dosage: UNK UKN, UNK
  3. CANCIDAS [Concomitant]
     Dosage: UNK UKN, UNK
  4. HEPARIN [Concomitant]
     Dosage: UNK UKN, UNK
  5. MESNA [Concomitant]
     Dosage: UNK UKN, UNK
     Dates: start: 20110910, end: 20110912
  6. CYCLOPHOSPHAMIDE [Concomitant]
     Dosage: UNK UKN, UNK
     Dates: start: 20110910, end: 20110912
  7. ZOFRAN [Concomitant]
     Dosage: UNK UKN, UNK
  8. TARGOCID [Concomitant]
     Dosage: UNK UKN, UNK
  9. MORPHINE SULFATE [Concomitant]
     Dosage: UNK UKN, UNK
  10. PIPERACILLIN AND TAZOBACTAM [Concomitant]
     Dosage: UNK UKN, UNK
  11. PLITICAN [Concomitant]
     Dosage: UNK UKN, UNK
  12. CLONAZEPAM [Concomitant]
     Dosage: UNK UKN, UNK
  13. ZOVIRAX [Concomitant]
     Dosage: UNK UKN, UNK
  14. ANTILYMPHOCYTE SERUM [Concomitant]
     Dosage: UNK UKN, UNK
     Dates: start: 20110912, end: 20110914
  15. BUSULFAN [Concomitant]
     Dosage: UNK UKN, UNK
     Dates: start: 20110906, end: 20110909

REACTIONS (7)
  - HAPTOGLOBIN DECREASED [None]
  - PLATELET COUNT DECREASED [None]
  - BONE MARROW FAILURE [None]
  - BLOOD UREA INCREASED [None]
  - BLOOD LACTATE DEHYDROGENASE INCREASED [None]
  - THROMBOTIC MICROANGIOPATHY [None]
  - BLOOD CREATININE INCREASED [None]
